FAERS Safety Report 17478267 (Version 1)
Quarter: 2020Q1

REPORT INFORMATION
  Report Type: Report from Study
  Country: GB (occurrence: GB)
  Receive Date: 20200228
  Receipt Date: 20200228
  Transmission Date: 20200409
  Serious: Yes (Hospitalization)
  Sender: FDA-Public Use
  Company Number: GB-PFIZER INC-2020081752

PATIENT
  Age: 60 Year
  Sex: Female

DRUGS (3)
  1. DUODOPA [Suspect]
     Active Substance: CARBIDOPA\LEVODOPA
     Dosage: CR DECREASEDTO 2.5 ML /HR MD 13.5ML/HR,EVENING DOSE 2.5 ML/HR
     Route: 050
     Dates: start: 202001
  2. DUODOPA [Suspect]
     Active Substance: CARBIDOPA\LEVODOPA
     Indication: PARKINSON^S DISEASE
     Dosage: 5MG/1ML20MG/1ML100ML CASSETTE DAILY CONTINUOUS RATE 2.7 ML /HR
     Route: 050
     Dates: end: 202001
  3. LORAZEPAM. [Suspect]
     Active Substance: LORAZEPAM
     Dosage: UNK
     Route: 065

REACTIONS (7)
  - Stoma site discharge [Unknown]
  - Hyperhidrosis [Recovered/Resolved]
  - Stoma site infection [Unknown]
  - Tremor [Recovered/Resolved]
  - Depression [Recovering/Resolving]
  - Abnormal dreams [Unknown]
  - Dystonia [Recovered/Resolved]
